FAERS Safety Report 4522250-6 (Version None)
Quarter: 2004Q4

REPORT INFORMATION
  Report Type: 
  Country: None (occurrence: None)
  Receive Date: 20041207
  Receipt Date: 20041122
  Transmission Date: 20050328
  Serious: Yes (Hospitalization, Other)
  Sender: FDA-Public Use
  Company Number: USA041184446

PATIENT
  Age: 76 Year
  Sex: Female

DRUGS (1)
  1. HUMULIN N [Suspect]
     Dates: start: 20041122

REACTIONS (12)
  - BLINDNESS [None]
  - BLOOD GLUCOSE INCREASED [None]
  - FOOT AMPUTATION [None]
  - GANGRENE [None]
  - HEARING IMPAIRED [None]
  - HYPOAESTHESIA [None]
  - LEG AMPUTATION [None]
  - LOCALISED INFECTION [None]
  - MEDICATION ERROR [None]
  - PAIN IN EXTREMITY [None]
  - PHARMACEUTICAL PRODUCT COMPLAINT [None]
  - TOE AMPUTATION [None]
